FAERS Safety Report 4264794-0 (Version None)
Quarter: 2004Q1

REPORT INFORMATION
  Report Type: 
  Country: None (occurrence: None)
  Receive Date: 20040105
  Receipt Date: 20031103
  Transmission Date: 20041129
  Serious: Yes (Hospitalization)
  Sender: FDA-Public Use
  Company Number: 2003182327US

PATIENT
  Age: 14 Year
  Sex: Female
  Weight: 32.2 kg

DRUGS (2)
  1. GENOTROPIN [Suspect]
     Indication: HYPOPITUITARISM
     Dosage: 9.6 MG, WEEKLY
     Dates: start: 20020117, end: 20030801
  2. ADDERALL (DEXAMFETAMINE SULFATE, AMFETAMINE SULFATE, DEXAMFETAMINE SAC [Concomitant]

REACTIONS (4)
  - ARNOLD-CHIARI MALFORMATION [None]
  - CONDITION AGGRAVATED [None]
  - DISEASE PROGRESSION [None]
  - SCOLIOSIS [None]
